FAERS Safety Report 26107785 (Version 1)
Quarter: 2025Q4

REPORT INFORMATION
  Report Type: Spontaneous
  Country: US (occurrence: None)
  Receive Date: 20251130
  Receipt Date: 20251130
  Transmission Date: 20260118
  Serious: Yes (Disabling, Other)
  Sender: FDA-CTU
  Company Number: None

PATIENT
  Age: 29 Year
  Sex: Female
  Weight: 65.25 kg

DRUGS (4)
  1. SKYRIZI [Suspect]
     Active Substance: RISANKIZUMAB-RZAA
     Indication: Guttate psoriasis
     Dosage: 1 INJECTION(S) LOADING DOSE 1 MON SUBCUTANEOUS ?
     Route: 058
     Dates: start: 20250903, end: 20251003
  2. WELLBUTRIN SR [Concomitant]
     Active Substance: BUPROPION HYDROCHLORIDE
  3. PROZAC [Concomitant]
     Active Substance: FLUOXETINE HYDROCHLORIDE
  4. SKYRIZI [Concomitant]
     Active Substance: RISANKIZUMAB-RZAA

REACTIONS (1)
  - Panic attack [None]

NARRATIVE: CASE EVENT DATE: 20251017
